FAERS Safety Report 12617935 (Version 3)
Quarter: 2017Q1

REPORT INFORMATION
  Report Type: Report from Study
  Country: JP (occurrence: JP)
  Receive Date: 20160803
  Receipt Date: 20170113
  Transmission Date: 20170428
  Serious: Yes (Hospitalization)
  Sender: FDA-Public Use
  Company Number: JP-CELGENEUS-JPN-2015105667

PATIENT
  Age: 60 Year
  Sex: Male
  Weight: 63.5 kg

DRUGS (21)
  1. ABRAXANE [Suspect]
     Active Substance: PACLITAXEL
     Dosage: 173 MILLIGRAM
     Route: 041
     Dates: start: 20151112
  2. NETICONAZOLE HYDROCHLORIDE [Concomitant]
     Indication: TINEA INFECTION
     Route: 061
  3. FOSAPREPITANT MEGLUMINE [Concomitant]
     Active Substance: FOSAPREPITANT
     Indication: PROPHYLAXIS OF NAUSEA AND VOMITING
     Route: 065
     Dates: start: 20151014, end: 20151014
  4. PALONOSETRON HYDROCHLORIDE. [Concomitant]
     Active Substance: PALONOSETRON HYDROCHLORIDE
     Indication: PROPHYLAXIS OF NAUSEA AND VOMITING
     Dosage: .75 MILLIGRAM
     Route: 041
     Dates: start: 20151014, end: 20151014
  5. ABRAXANE [Suspect]
     Active Substance: PACLITAXEL
     Indication: NON-SMALL CELL LUNG CANCER
     Dosage: 173 MILLIGRAM
     Route: 041
     Dates: start: 20151014, end: 20151014
  6. ABRAXANE [Suspect]
     Active Substance: PACLITAXEL
     Dosage: 173 MILLIGRAM
     Route: 041
     Dates: start: 20151021
  7. ABRAXANE [Suspect]
     Active Substance: PACLITAXEL
     Dosage: 173 MILLIGRAM
     Route: 041
     Dates: start: 20151119
  8. CARBOPLATIN. [Suspect]
     Active Substance: CARBOPLATIN
     Indication: NON-SMALL CELL LUNG CANCER
     Dosage: 831 MILLIGRAM
     Route: 041
     Dates: start: 20151014, end: 20151014
  9. CARBOPLATIN. [Suspect]
     Active Substance: CARBOPLATIN
     Dosage: 831 MILLIGRAM
     Route: 041
     Dates: start: 20151112, end: 20151112
  10. FOSAPREPITANT MEGLUMINE [Concomitant]
     Active Substance: FOSAPREPITANT
     Indication: PROPHYLAXIS OF NAUSEA AND VOMITING
     Route: 065
     Dates: start: 20151105
  11. PALONOSETRON HYDROCHLORIDE. [Concomitant]
     Active Substance: PALONOSETRON HYDROCHLORIDE
     Route: 041
     Dates: start: 20151203
  12. MPDL3280A (ATEZOLIZUMAB) [Suspect]
     Active Substance: ATEZOLIZUMAB
     Dosage: 1200 MILLIGRAM
     Route: 041
     Dates: start: 20151203
  13. UREA. [Concomitant]
     Active Substance: UREA
     Indication: TINEA INFECTION
     Route: 061
  14. FOSAPREPITANT MEGLUMINE [Concomitant]
     Active Substance: FOSAPREPITANT
     Route: 065
     Dates: start: 20151203
  15. ABRAXANE [Suspect]
     Active Substance: PACLITAXEL
     Dosage: 130 MILLIGRAM
     Route: 041
     Dates: start: 20151210
  16. MPDL3280A (ATEZOLIZUMAB) [Suspect]
     Active Substance: ATEZOLIZUMAB
     Dosage: 1200 MILLIGRAM
     Route: 041
     Dates: start: 20151112, end: 20151112
  17. NEO-MINOPHAGEN C [Concomitant]
     Active Substance: AMMONIUM GLYCYRRHIZATE
     Indication: HEPATIC FUNCTION ABNORMAL
     Route: 050
     Dates: start: 20151126, end: 20151130
  18. MPDL3280A (ATEZOLIZUMAB) [Suspect]
     Active Substance: ATEZOLIZUMAB
     Indication: NON-SMALL CELL LUNG CANCER
     Dosage: 1200 MILLIGRAM
     Route: 041
     Dates: start: 20151014, end: 20151014
  19. CARBOPLATIN. [Suspect]
     Active Substance: CARBOPLATIN
     Dosage: 623 MILLIGRAM
     Route: 041
     Dates: start: 20151203
  20. FOSAPREPITANT MEGLUMINE [Concomitant]
     Active Substance: FOSAPREPITANT
     Route: 065
     Dates: start: 20151112, end: 20151112
  21. PALONOSETRON HYDROCHLORIDE. [Concomitant]
     Active Substance: PALONOSETRON HYDROCHLORIDE
     Indication: PROPHYLAXIS OF NAUSEA AND VOMITING
     Route: 041
     Dates: start: 20151112, end: 20151112

REACTIONS (6)
  - Influenza like illness [Recovered/Resolved]
  - Influenza like illness [Recovered/Resolved]
  - Pericardial effusion [Recovered/Resolved]
  - Influenza like illness [Recovered/Resolved]
  - Influenza like illness [Recovered/Resolved]
  - Influenza like illness [Recovered/Resolved]

NARRATIVE: CASE EVENT DATE: 20151016
